FAERS Safety Report 9504862 (Version 2)
Quarter: 2013Q3

REPORT INFORMATION
  Report Type: Spontaneous
  Country: US (occurrence: US)
  Receive Date: 20130906
  Receipt Date: 20130913
  Transmission Date: 20140515
  Serious: Yes (Hospitalization)
  Sender: FDA-Public Use
  Company Number: US-BAXTER-2013BAX034561

PATIENT
  Sex: Female

DRUGS (14)
  1. 0.9% SODIUM CHLORIDE INJECTION [Suspect]
     Indication: PRODUCT USED FOR UNKNOWN INDICATION
     Dosage: 100 ML/HR
     Route: 042
     Dates: start: 20130814
  2. KEPPRA [Suspect]
     Indication: GRAND MAL CONVULSION
     Route: 042
     Dates: start: 20130814
  3. KEPPRA [Suspect]
     Indication: GRAND MAL CONVULSION
  4. VALPROATE SODIUM [Suspect]
     Indication: GRAND MAL CONVULSION
     Route: 042
     Dates: start: 20130814, end: 20130815
  5. LOVENOX [Concomitant]
     Indication: PRODUCT USED FOR UNKNOWN INDICATION
     Route: 065
  6. LOVENOX [Concomitant]
     Indication: GRAND MAL CONVULSION
  7. LACTULOSE [Concomitant]
     Indication: PRODUCT USED FOR UNKNOWN INDICATION
     Route: 065
  8. LACTULOSE [Concomitant]
     Indication: GRAND MAL CONVULSION
  9. MIRALAX [Concomitant]
     Indication: PRODUCT USED FOR UNKNOWN INDICATION
     Route: 065
  10. MIRALAX [Concomitant]
     Indication: GRAND MAL CONVULSION
  11. SENNA [Concomitant]
     Indication: PRODUCT USED FOR UNKNOWN INDICATION
     Route: 065
  12. SENNA [Concomitant]
     Indication: GRAND MAL CONVULSION
  13. LORAZEPAM [Concomitant]
     Indication: PRODUCT USED FOR UNKNOWN INDICATION
     Route: 065
  14. LORAZEPAM [Concomitant]
     Indication: GRAND MAL CONVULSION

REACTIONS (7)
  - Catheter site related reaction [Not Recovered/Not Resolved]
  - Rash maculo-papular [Not Recovered/Not Resolved]
  - Skin ulcer [Not Recovered/Not Resolved]
  - Infusion site extravasation [Not Recovered/Not Resolved]
  - Dermatitis bullous [Unknown]
  - Oedema peripheral [Not Recovered/Not Resolved]
  - Erythema [Not Recovered/Not Resolved]
